FAERS Safety Report 8976575 (Version 1)
Quarter: 2012Q4

REPORT INFORMATION
  Report Type: Report from Study
  Country: CA (occurrence: CA)
  Receive Date: 20121220
  Receipt Date: 20121220
  Transmission Date: 20130627
  Serious: Yes (Other)
  Sender: FDA-Public Use
  Company Number: CA-JNJFOC-20121204399

PATIENT
  Sex: Male
  Weight: 118.84 kg

DRUGS (2)
  1. REMICADE [Suspect]
     Indication: PSORIASIS
     Route: 042
     Dates: start: 2012
  2. REMICADE [Suspect]
     Indication: PSORIASIS
     Route: 042

REACTIONS (9)
  - Neck pain [Recovering/Resolving]
  - Back pain [Recovering/Resolving]
  - Musculoskeletal pain [Recovering/Resolving]
  - Pain [Recovering/Resolving]
  - Pain in extremity [Recovering/Resolving]
  - Ocular hyperaemia [Recovering/Resolving]
  - Oropharyngeal pain [Recovering/Resolving]
  - Glossodynia [Recovering/Resolving]
  - Eye pain [Recovering/Resolving]
